FAERS Safety Report 8798053 (Version 2)
Quarter: 2015Q2

REPORT INFORMATION
  Report Type: Report from Study
  Country: US (occurrence: US)
  Receive Date: 20120919
  Receipt Date: 20150617
  Transmission Date: 20150821
  Serious: Yes (Death)
  Sender: FDA-Public Use
  Company Number: US-ROCHE-1125757

PATIENT
  Sex: Male

DRUGS (5)
  1. ATROPINE [Concomitant]
     Active Substance: ATROPINE
     Route: 042
  2. GRANISETRON [Concomitant]
     Active Substance: GRANISETRON
     Route: 048
  3. AVASTIN [Suspect]
     Active Substance: BEVACIZUMAB
     Indication: BRAIN NEOPLASM MALIGNANT
     Route: 042
     Dates: start: 20060619
  4. CARBOPLATIN. [Concomitant]
     Active Substance: CARBOPLATIN
     Route: 042
  5. IRINOTECAN [Concomitant]
     Active Substance: IRINOTECAN
     Route: 042

REACTIONS (2)
  - Death [Fatal]
  - Off label use [Unknown]
